FAERS Safety Report 4388290-5 (Version None)
Quarter: 2004Q2

REPORT INFORMATION
  Report Type: 
  Country: None (occurrence: None)
  Receive Date: 20040625
  Receipt Date: 20040610
  Transmission Date: 20050107
  Serious: Yes (Life-Threatening)
  Sender: FDA-Public Use
  Company Number: 2004-BP-04289AU

PATIENT
  Age: 59 Year
  Sex: Male

DRUGS (3)
  1. PERSANTIN [Suspect]
     Indication: CARDIAC IMAGING PROCEDURE
     Dosage: (SEE TEXT, 0.57 MG/KG/DOSE GIVEN OVER 4 MINS (STRENGTH:  5MG/1ML) IV
     Route: 042
     Dates: start: 20040422, end: 20040422
  2. LIPEX (SIMVASTATIN) (TA) [Concomitant]
  3. ASTRIX (ACETYLSALICYLIC ACID) (NR) [Concomitant]

REACTIONS (6)
  - FEELING COLD [None]
  - HEADACHE [None]
  - HOT FLUSH [None]
  - HYPOTENSION [None]
  - NAUSEA [None]
  - VISION BLURRED [None]
